FAERS Safety Report 22353096 (Version 2)
Quarter: 2023Q4

REPORT INFORMATION
  Report Type: Spontaneous
  Country: US (occurrence: US)
  Receive Date: 20230523
  Receipt Date: 20231129
  Transmission Date: 20240110
  Serious: No
  Sender: FDA-Public Use
  Company Number: US-UCBSA-2023025341

PATIENT
  Age: 55 Year
  Sex: Female

DRUGS (1)
  1. CIMZIA [Suspect]
     Active Substance: CERTOLIZUMAB PEGOL
     Indication: Product used for unknown indication
     Dosage: 200 MILLIGRAM, UNK (OTHER)
     Route: 058

REACTIONS (4)
  - Injection site bruising [Unknown]
  - Injection site urticaria [Unknown]
  - Nausea [Unknown]
  - Device defective [Unknown]

NARRATIVE: CASE EVENT DATE: 20230516
